FAERS Safety Report 5052683-3 (Version None)
Quarter: 2006Q3

REPORT INFORMATION
  Report Type: 
  Country: None (occurrence: None)
  Receive Date: 20060717
  Receipt Date: 20060706
  Transmission Date: 20061208
  Serious: Yes (Other)
  Sender: FDA-Public Use
  Company Number: US-JNJFOC-20060701151

PATIENT
  Sex: Female
  Weight: 77.11 kg

DRUGS (4)
  1. REMICADE [Suspect]
     Route: 042
  2. REMICADE [Suspect]
     Route: 042
  3. REMICADE [Suspect]
     Indication: CROHN'S DISEASE
     Route: 042
  4. SULFASALAZINE [Concomitant]
     Indication: CROHN'S DISEASE

REACTIONS (5)
  - ARTHRALGIA [None]
  - ARTHRITIS [None]
  - BREAST CANCER [None]
  - INFUSION RELATED REACTION [None]
  - NAUSEA [None]
